FAERS Safety Report 8877659 (Version 1)
Quarter: 2012Q4

REPORT INFORMATION
  Report Type: Spontaneous
  Country: FR (occurrence: None)
  Receive Date: 20121025
  Receipt Date: 20121025
  Transmission Date: 20130627
  Serious: Yes (Hospitalization)
  Sender: FDA-Public Use
  Company Number: DSA_60257_2012

PATIENT
  Age: 57 Year
  Sex: Male

DRUGS (14)
  1. MONO-TILDIEM [Suspect]
     Indication: PRODUCT USED FOR UNKNOWN INDICATION
     Route: 048
  2. PREVISCAN [Suspect]
     Indication: PRODUCT USED FOR UNKNOWN INDICATION
     Route: 048
     Dates: end: 20120905
  3. PREVISCAN [Suspect]
     Indication: PRODUCT USED FOR UNKNOWN INDICATION
     Route: 048
     Dates: end: 20120905
  4. RAMIPRIL (RAMIPRIL) [Suspect]
     Indication: PRODUCT USED FOR UNKNOWN INDICATION
     Route: 048
  5. DIGOXINE [Suspect]
     Indication: PRODUCT USED FOR UNKNOWN INDICATION
     Route: 048
  6. SPIRIVA [Concomitant]
  7. SERETIDE [Concomitant]
  8. BRICANYL [Concomitant]
  9. NASONEX [Concomitant]
  10. BRONCHODUAL [Concomitant]
  11. BURINEX [Concomitant]
  12. DIFFU K [Concomitant]
  13. NICOBION [Concomitant]
  14. OXYGEN [Concomitant]

REACTIONS (4)
  - Thrombocytopenia [None]
  - Hyperthermia [None]
  - Inflammation [None]
  - Autoimmune thrombocytopenia [None]
